FAERS Safety Report 11351702 (Version 1)
Quarter: 2015Q3

REPORT INFORMATION
  Report Type: Spontaneous
  Country: US (occurrence: US)
  Receive Date: 20150807
  Receipt Date: 20150807
  Transmission Date: 20151125
  Serious: No
  Sender: FDA-Public Use
  Company Number: US-JNJFOC-20150115951

PATIENT
  Age: 58 Year
  Sex: Male
  Weight: 108.86 kg

DRUGS (3)
  1. MENS ROGAINE EXTRA STRENGTH [Suspect]
     Active Substance: MINOXIDIL
     Indication: ALOPECIA
     Route: 061
  2. UNSPECIFED MEDICATIONS [Concomitant]
     Active Substance: UNSPECIFIED INGREDIENT
     Indication: TINNITUS
     Dosage: DOSAGE - ABOUT 4 PILLS/DAY??????INTERVAL - ABOUT 2 WEEKS
     Route: 065
  3. MENS ROGAINE EXTRA STRENGTH [Suspect]
     Active Substance: MINOXIDIL
     Route: 061

REACTIONS (8)
  - Eye swelling [Recovering/Resolving]
  - Erythema [Recovering/Resolving]
  - Swelling face [Recovering/Resolving]
  - Skin exfoliation [Recovering/Resolving]
  - Application site pruritus [Recovering/Resolving]
  - Pruritus [Recovering/Resolving]
  - Application site exfoliation [Recovering/Resolving]
  - Application site dryness [Recovering/Resolving]
